FAERS Safety Report 6333242-9 (Version None)
Quarter: 2009Q3

REPORT INFORMATION
  Report Type: 
  Country: None (occurrence: None)
  Receive Date: 20090828
  Receipt Date: 20090819
  Transmission Date: 20100115
  Serious: Yes (Hospitalization)
  Sender: FDA-Public Use
  Company Number: GB-ABBOTT-09P-167-0592545-00

PATIENT
  Age: 90 Year
  Sex: Female

DRUGS (5)
  1. WARFARIN [Suspect]
     Indication: ATRIAL FIBRILLATION
  2. WARFARIN [Suspect]
     Dosage: FOR 3 DAYS
  3. TRAMADOL HCL [Concomitant]
     Indication: ANALGESIA
  4. BENDROFLUMETHIAZIDE [Concomitant]
     Indication: HYPERTENSION
  5. PARACETAMOL [Concomitant]
     Indication: ANALGESIA

REACTIONS (1)
  - HAEMATOMA [None]
